FAERS Safety Report 4726836-5 (Version None)
Quarter: 2005Q3

REPORT INFORMATION
  Report Type: 
  Country: None (occurrence: None)
  Receive Date: 20050726
  Receipt Date: 20050711
  Transmission Date: 20060218
  Serious: Yes (Other)
  Sender: FDA-Public Use
  Company Number: GB-2005-009307

PATIENT
  Age: 31 Year
  Sex: Female
  Weight: 102 kg

DRUGS (2)
  1. BETASERON [Suspect]
     Indication: MULTIPLE SCLEROSIS
     Dosage: 250 UG, EVERY 2D, SUBCUTANEOUS
     Route: 058
     Dates: start: 20040528, end: 20040903
  2. GABAPENTIN [Concomitant]

REACTIONS (3)
  - DIZZINESS [None]
  - PALPITATIONS [None]
  - PHOTOPSIA [None]
